FAERS Safety Report 19447433 (Version 1)
Quarter: 2021Q2

REPORT INFORMATION
  Report Type: Spontaneous
  Country: US (occurrence: US)
  Receive Date: 20210622
  Receipt Date: 20210622
  Transmission Date: 20210717
  Serious: No
  Sender: FDA-Public Use
  Company Number: US-BAYER-2021-162134

PATIENT
  Age: 72 Year
  Sex: Female

DRUGS (1)
  1. MIRALAX [Suspect]
     Active Substance: POLYETHYLENE GLYCOL 3350
     Indication: COLONOSCOPY
     Dosage: ;2 CAP FULL MIX IN 8 OUNCES OF LIQUID EVERY 30 MINUTES DOSE
     Route: 048

REACTIONS (2)
  - Extra dose administered [Unknown]
  - Off label use [Unknown]
